FAERS Safety Report 4678286-8 (Version None)
Quarter: 2005Q2

REPORT INFORMATION
  Report Type: 
  Country: None (occurrence: None)
  Receive Date: 20050527
  Receipt Date: 20050516
  Transmission Date: 20051028
  Serious: Yes (Hospitalization)
  Sender: FDA-Public Use
  Company Number: 212089

PATIENT
  Age: 68 Year
  Sex: Male
  Weight: 66 kg

DRUGS (5)
  1. RITUXAN [Suspect]
     Indication: LYMPHOMA
     Dosage: 650 MG, INTRAVENOUS
     Route: 042
     Dates: start: 20040708, end: 20041026
  2. CYCLOPHOSPHAMIDE [Suspect]
     Indication: LYMPHOMA
     Dosage: 900 MG, INTRAVENOUS
     Route: 042
     Dates: start: 20040709
  3. PIRARUBICIN (PIRARUBICIN) [Suspect]
     Indication: LYMPHOMA
     Dosage: 60 MG, INTRAVENOUS
     Route: 042
     Dates: start: 20040709
  4. VINCRISTINE [Suspect]
     Indication: LYMPHOMA
     Dosage: 1.7 MG, INTRAVENOUS
     Route: 042
     Dates: start: 20040709
  5. PREDNISONE (PREDNISONE) [Concomitant]

REACTIONS (1)
  - HEPATITIS B [None]
